FAERS Safety Report 6933151-8 (Version None)
Quarter: 2010Q3

REPORT INFORMATION
  Report Type: 
  Country: None (occurrence: None)
  Receive Date: 20100820
  Receipt Date: 20100809
  Transmission Date: 20110219
  Serious: Yes (Hospitalization)
  Sender: FDA-Public Use
  Company Number: US-BIOGENIDEC-2010BI018514

PATIENT
  Age: 76 Year
  Sex: Female

DRUGS (20)
  1. TYSABRI [Suspect]
     Indication: MULTIPLE SCLEROSIS
     Route: 042
     Dates: start: 20090112
  2. ATENOLOL [Concomitant]
     Indication: HYPERTENSION
  3. ZESTRIL [Concomitant]
     Indication: HYPERTENSION
  4. MENEST [Concomitant]
  5. BACLOFEN [Concomitant]
  6. SYNTHROID [Concomitant]
     Indication: HYPOTHYROIDISM
  7. OXYBUTYNIN [Concomitant]
     Indication: BLADDER SPASM
  8. FOSAMAX [Concomitant]
     Indication: OSTEOPOROSIS
  9. MACROBID [Concomitant]
  10. HYDROCODONE BITARTRATE [Concomitant]
     Indication: PAIN
  11. LASIX [Concomitant]
     Indication: DIURETIC THERAPY
  12. POTASSIUM [Concomitant]
     Indication: MINERAL SUPPLEMENTATION
  13. CENTRUM VITAMINS [Concomitant]
     Indication: VITAMIN SUPPLEMENTATION
  14. VITAMIN B-12 [Concomitant]
     Indication: ASTHENIA
  15. VITAMIN C SUPPLEMENT [Concomitant]
  16. FISH OIL [Concomitant]
  17. GLUCOSAMINE [Concomitant]
  18. CITRACAL [Concomitant]
  19. CLARITIN [Concomitant]
     Indication: HYPERSENSITIVITY
  20. CHLORPHENIRAMINE MALEATE [Concomitant]

REACTIONS (5)
  - CEREBRAL INFARCTION [None]
  - HYPERTENSION [None]
  - HYPONATRAEMIA [None]
  - HYPOTHYROIDISM [None]
  - MUSCULAR WEAKNESS [None]
